FAERS Safety Report 18794608 (Version 2)
Quarter: 2022Q2

REPORT INFORMATION
  Report Type: Spontaneous
  Country: US (occurrence: US)
  Receive Date: 20210127
  Receipt Date: 20220503
  Transmission Date: 20220721
  Serious: No
  Sender: FDA-Public Use
  Company Number: US-PFIZER INC-2021050160

PATIENT
  Age: 72 Year
  Sex: Female

DRUGS (1)
  1. EUCRISA [Suspect]
     Active Substance: CRISABOROLE
     Dosage: UNK, 2X/DAY (APPLY TO BILATERAL ARMS TWICE DAILY, AS NEEDED)

REACTIONS (4)
  - Fall [Unknown]
  - Pain [Unknown]
  - Contusion [Unknown]
  - Gait disturbance [Unknown]
